FAERS Safety Report 10970744 (Version 1)
Quarter: 2015Q1

REPORT INFORMATION
  Report Type: Spontaneous
  Country: US (occurrence: US)
  Receive Date: 20150331
  Receipt Date: 20150331
  Transmission Date: 20150721
  Serious: Yes (Death, Other)
  Sender: FDA-Public Use
  Company Number: US-BAYER-2015-051577

PATIENT
  Age: 87 Year
  Sex: Female

DRUGS (1)
  1. STIVARGA [Suspect]
     Active Substance: REGORAFENIB
     Indication: COLON CANCER
     Dosage: DAILY DOSE 160 MG
     Route: 048
     Dates: start: 20140826, end: 20141109

REACTIONS (6)
  - Memory impairment [None]
  - Death [Fatal]
  - Thinking abnormal [None]
  - Mobility decreased [None]
  - Alopecia [None]
  - Balance disorder [None]

NARRATIVE: CASE EVENT DATE: 20141110
